FAERS Safety Report 6824021-4 (Version None)
Quarter: 2010Q3

REPORT INFORMATION
  Report Type: 
  Country: None (occurrence: None)
  Receive Date: 20100708
  Receipt Date: 20060930
  Transmission Date: 20110219
  Serious: No
  Sender: FDA-Public Use
  Company Number: US-PFIZER INC-2006119512

PATIENT
  Sex: Female
  Weight: 76.7 kg

DRUGS (14)
  1. CHANTIX [Suspect]
     Indication: EX-TOBACCO USER
     Dates: start: 20060901
  2. TOPROL-XL [Concomitant]
  3. SPIRONOLACTONE [Concomitant]
  4. FEMARA [Concomitant]
  5. FUROSEMIDE [Concomitant]
  6. LISINOPRIL [Concomitant]
  7. METHIMAZOLE [Concomitant]
  8. VITAMINS [Concomitant]
  9. CALCIUM CARBONATE [Concomitant]
  10. SINGULAIR [Concomitant]
  11. EFFEXOR [Concomitant]
  12. ADVAIR DISKUS 100/50 [Concomitant]
  13. ALBUTEROL [Concomitant]
  14. POTASSIUM CHLORIDE [Concomitant]

REACTIONS (2)
  - EATING DISORDER [None]
  - NAUSEA [None]
